FAERS Safety Report 5004349-3 (Version None)
Quarter: 2006Q2

REPORT INFORMATION
  Report Type: 
  Country: None (occurrence: None)
  Receive Date: 20060517
  Receipt Date: 20060328
  Transmission Date: 20061013
  Serious: Yes (Hospitalization)
  Sender: FDA-Public Use
  Company Number: NL-GLAXOSMITHKLINE-B0419414A

PATIENT
  Age: 58 Year
  Sex: Female
  Weight: 120 kg

DRUGS (1)
  1. FLUTICASONE PROPIONATE + SALMETEROL XINAFOATE [Suspect]
     Indication: ASTHMA
     Route: 055
     Dates: start: 20050101, end: 20060328

REACTIONS (3)
  - ARRHYTHMIA [None]
  - MEMORY IMPAIRMENT [None]
  - PALPITATIONS [None]
